FAERS Safety Report 9056288 (Version 2)
Quarter: 2013Q1

REPORT INFORMATION
  Report Type: Report from Study
  Country: DE (occurrence: DE)
  Receive Date: 20130205
  Receipt Date: 20130215
  Transmission Date: 20140127
  Serious: Yes (Death, Life-Threatening, Hospitalization)
  Sender: FDA-Public Use
  Company Number: DE-ROCHE-1138429

PATIENT
  Age: 65 None
  Sex: Male
  Weight: 61 kg

DRUGS (43)
  1. METHOXY POLYETHYLENE GLYCOL-EPOETIN BETA [Suspect]
     Indication: NEPHROGENIC ANAEMIA
     Dosage: LAST DOSE 200MCG ON 19/DEC/2012 PRIOR TO SAE
     Route: 042
     Dates: start: 20111019
  2. METHOXY POLYETHYLENE GLYCOL-EPOETIN BETA [Suspect]
     Dosage: DATE OF LAST DOSE PRIOR TO SAE: 19/SEP/2012
     Route: 042
     Dates: start: 20120918
  3. BISOPROLOL [Concomitant]
     Route: 065
     Dates: start: 20060414
  4. BISOPROLOL [Concomitant]
     Route: 065
     Dates: start: 20121128, end: 20121220
  5. PANTOPRAZOL [Concomitant]
     Route: 065
     Dates: start: 20090414
  6. ACETYLSALICYLSAURE [Concomitant]
     Route: 065
     Dates: start: 20060414, end: 20121001
  7. SERTRALINE [Concomitant]
     Route: 065
     Dates: start: 20060414
  8. SERTRALINE [Concomitant]
     Route: 065
     Dates: end: 20121220
  9. DREISAVIT N [Concomitant]
     Dosage: 1 TBL
     Route: 065
     Dates: start: 20060414, end: 20121005
  10. MIRTAZAPIN [Concomitant]
     Route: 065
     Dates: start: 20060414
  11. MIRTAZAPIN [Concomitant]
     Route: 065
     Dates: start: 20121103, end: 20121220
  12. ALUMINIUM HYDROXIDE [Concomitant]
     Route: 065
     Dates: start: 20060414
  13. TIOTROPIUM BROMIDE [Concomitant]
     Route: 065
     Dates: start: 20080716
  14. LEVODOPA + BENSERAZIDE [Concomitant]
     Dosage: 100/25MG
     Route: 065
     Dates: start: 20080809, end: 20120930
  15. TAMSULOSIN [Concomitant]
     Route: 065
     Dates: start: 20080917
  16. SALMETEROL [Concomitant]
     Route: 065
     Dates: start: 20100115
  17. FLUTICASONE [Concomitant]
     Route: 065
     Dates: start: 20100115
  18. CHOLECALCIFEROL [Concomitant]
     Route: 065
     Dates: start: 20100122
  19. CALCITRIOL [Concomitant]
     Route: 065
     Dates: start: 20120413, end: 20121231
  20. PREGABALIN [Concomitant]
     Route: 065
     Dates: start: 20120506, end: 20120920
  21. CLOPIDOGREL [Concomitant]
     Route: 065
     Dates: start: 20120829, end: 20121211
  22. LEVOFLOXACIN [Concomitant]
     Route: 065
     Dates: start: 20120903
  23. LEVOFLOXACIN [Concomitant]
     Route: 065
     Dates: start: 20110812
  24. FUROSEMIDE [Concomitant]
     Route: 065
     Dates: start: 20060414
  25. PRAVASTATIN [Concomitant]
     Route: 065
     Dates: start: 20120917
  26. THIAMIN [Concomitant]
     Route: 065
     Dates: start: 20120920, end: 20121016
  27. HUMAN ALBUMIN [Concomitant]
     Route: 065
     Dates: start: 20110805
  28. TIGECYCLINE [Concomitant]
     Route: 065
     Dates: start: 20120909, end: 20120922
  29. SALBUTAMOL [Concomitant]
     Route: 065
     Dates: start: 20120920
  30. IPRATROPIUM [Concomitant]
     Route: 065
     Dates: start: 20120920
  31. VORICONAZOLE [Concomitant]
     Route: 065
     Dates: start: 20120922, end: 20121018
  32. VORICONAZOLE [Concomitant]
     Route: 065
     Dates: start: 20121223, end: 20121226
  33. NORADRENALIN [Concomitant]
     Route: 065
     Dates: start: 20120921, end: 20121021
  34. NORADRENALIN [Concomitant]
     Route: 065
     Dates: start: 20121222
  35. LINEZOLID [Concomitant]
     Route: 065
     Dates: start: 20121002, end: 20121016
  36. LEVOTHYROXIN [Concomitant]
     Route: 065
     Dates: start: 20110812, end: 20121231
  37. TAZOBACTAM [Concomitant]
     Route: 065
     Dates: start: 20121228, end: 20121229
  38. TAZOBACTAM [Concomitant]
     Route: 065
     Dates: start: 20121105, end: 20121219
  39. COLISTIN [Concomitant]
     Route: 065
     Dates: start: 20121223, end: 20121231
  40. RAMIPRIL [Concomitant]
     Route: 065
     Dates: start: 20121011, end: 20121220
  41. AMLODIPINE [Concomitant]
     Route: 065
     Dates: start: 20121110, end: 20121220
  42. CIPROFLOXACIN [Concomitant]
     Route: 065
     Dates: start: 20121217
  43. ETORICOXIB [Concomitant]
     Route: 065
     Dates: start: 20121219

REACTIONS (5)
  - Sepsis [Fatal]
  - Sepsis [Not Recovered/Not Resolved]
  - Adrenal insufficiency [Recovered/Resolved]
  - Pneumonia [Recovered/Resolved]
  - Bacteraemia [Recovered/Resolved]
